FAERS Safety Report 9947696 (Version 1)
Quarter: 2014Q1

REPORT INFORMATION
  Report Type: Report from Study
  Country: US (occurrence: US)
  Receive Date: 20140303
  Receipt Date: 20140303
  Transmission Date: 20141002
  Serious: No
  Sender: FDA-Public Use
  Company Number: US-ABBVIE-13P-163-1058859-00

PATIENT
  Age: 56 Year
  Sex: Female
  Weight: 103.51 kg

DRUGS (8)
  1. HUMIRA [Suspect]
     Indication: RHEUMATOID ARTHRITIS
     Dates: start: 201212, end: 20130227
  2. FENOFIBRATE [Concomitant]
     Indication: BLOOD CHOLESTEROL
  3. GLIPIZIDE [Concomitant]
     Indication: DIABETES MELLITUS
  4. CYMBALTA [Concomitant]
     Indication: DEPRESSION
  5. VALIUM [Concomitant]
     Indication: ANXIETY
  6. TRAZADONE [Concomitant]
     Indication: INSOMNIA
  7. LOVASTATIN [Concomitant]
     Indication: BLOOD CHOLESTEROL INCREASED
  8. ADVAIR [Concomitant]
     Indication: ASTHMA

REACTIONS (1)
  - Rheumatoid arthritis [Not Recovered/Not Resolved]
